FAERS Safety Report 9498613 (Version 2)
Quarter: 2013Q3

REPORT INFORMATION
  Report Type: Spontaneous
  Country: GB (occurrence: GB)
  Receive Date: 20130904
  Receipt Date: 20130920
  Transmission Date: 20140515
  Serious: Yes (Death)
  Sender: FDA-Public Use
  Company Number: GB-NAPPMUNDI-GBR-2013-0015540

PATIENT
  Age: 86 Year
  Sex: Female

DRUGS (2)
  1. MST CONTINUS TABLETS [Suspect]
     Indication: DRUG DIVERSION
     Route: 048
  2. CODEINE [Suspect]
     Indication: PRODUCT USED FOR UNKNOWN INDICATION
     Route: 065

REACTIONS (3)
  - Intentional overdose [Fatal]
  - Drug diversion [Fatal]
  - Expired drug administered [Unknown]
